FAERS Safety Report 8270655-2 (Version None)
Quarter: 2012Q2

REPORT INFORMATION
  Report Type: 
  Country: None (occurrence: None)
  Receive Date: 20120410
  Receipt Date: 20120402
  Transmission Date: 20120825
  Serious: Yes (Other)
  Sender: FDA-Public Use
  Company Number: TR-AMGEN-TURSP2012021402

PATIENT
  Sex: Female

DRUGS (1)
  1. ENBREL [Suspect]
     Indication: ANKYLOSING SPONDYLITIS
     Dosage: 50 MG, WEEKLY
     Route: 058
     Dates: start: 20100611

REACTIONS (5)
  - FATIGUE [None]
  - WEIGHT DECREASED [None]
  - INJECTION SITE PAIN [None]
  - BURNING SENSATION [None]
  - MUSCULOSKELETAL STIFFNESS [None]
